FAERS Safety Report 15764343 (Version 2)
Quarter: 2019Q1

REPORT INFORMATION
  Report Type: Spontaneous
  Country: US (occurrence: US)
  Receive Date: 20181227
  Receipt Date: 20190102
  Transmission Date: 20190417
  Serious: No
  Sender: FDA-Public Use
  Company Number: US-PCCINC-2018-PEL-003359

PATIENT

DRUGS (14)
  1. GABLOFEN [Suspect]
     Active Substance: BACLOFEN
     Dosage: UNK
     Route: 037
  2. LYRICA [Concomitant]
     Active Substance: PREGABALIN
     Dosage: 200 MG, AT NIGHT
     Route: 048
  3. GABLOFEN [Suspect]
     Active Substance: BACLOFEN
     Indication: MUSCLE SPASTICITY
     Dosage: 89.95 ?G, QD
     Route: 037
     Dates: start: 20170707
  4. GABLOFEN [Suspect]
     Active Substance: BACLOFEN
     Indication: MULTIPLE SCLEROSIS
     Dosage: 100.06 ?G, QD
     Route: 037
     Dates: start: 20180118
  5. GABAPENTIN. [Concomitant]
     Active Substance: GABAPENTIN
     Dosage: 100 MG, TID
     Route: 048
  6. AMPYRA [Concomitant]
     Active Substance: DALFAMPRIDINE
     Dosage: 10 MG, 12 HOUR BID
     Route: 048
     Dates: start: 20171109
  7. HYDROCODONE BITARTRATE AND ACETAMINOPHEN [Concomitant]
     Active Substance: ACETAMINOPHEN\HYDROCODONE BITARTRATE
     Dosage: UNK
  8. EFFEXOR XR [Concomitant]
     Active Substance: VENLAFAXINE HYDROCHLORIDE
     Dosage: 150 MG, QD
     Route: 048
     Dates: start: 20180111
  9. BACLOFEN. [Concomitant]
     Active Substance: BACLOFEN
     Dosage: 20 MG, 2 TID (40 MG MORNING, 30 MG NOON AND AT BEDTIME/HS)
     Route: 048
  10. LEVOTHYROXINE SODIUM. [Concomitant]
     Active Substance: LEVOTHYROXINE SODIUM
     Dosage: UNK, QD
     Route: 065
     Dates: start: 20171001, end: 20171127
  11. ACIDOPHILUS PROBIOTIC [Concomitant]
     Dosage: 100 MG, QD
     Dates: start: 20170807
  12. MULTIVITAMINS                      /07504101/ [Concomitant]
     Active Substance: VITAMINS
     Dosage: UNK, QD
     Route: 048
     Dates: start: 20170607
  13. MORPHINE [Suspect]
     Active Substance: MORPHINE
     Route: 065
  14. LYRICA [Concomitant]
     Active Substance: PREGABALIN
     Dosage: 50 MG, BID
     Route: 048
     Dates: start: 20180102

REACTIONS (11)
  - Musculoskeletal stiffness [Unknown]
  - Croup noninfectious [Unknown]
  - Asthenia [Unknown]
  - Hypoaesthesia [Unknown]
  - Myalgia [Unknown]
  - Paraesthesia [Unknown]
  - Off label use [Unknown]
  - Weight increased [Unknown]
  - Burning sensation [Unknown]
  - Product prescribing error [Recovered/Resolved]
  - Peripheral coldness [Unknown]
